FAERS Safety Report 17062628 (Version 1)
Quarter: 2019Q4

REPORT INFORMATION
  Report Type: Report from Study
  Country: None (occurrence: US)
  Receive Date: 20191122
  Receipt Date: 20191122
  Transmission Date: 20200122
  Serious: Yes (Other)
  Sender: FDA-Public Use
  Company Number: US-ABBVIE-19K-163-3005786-00

PATIENT
  Age: 56 Year
  Sex: Female

DRUGS (1)
  1. HUMIRA [Suspect]
     Active Substance: ADALIMUMAB
     Indication: PSORIATIC ARTHROPATHY
     Dosage: DOSAGE FORM: 0.8 ML
     Route: 058

REACTIONS (3)
  - Dust allergy [Unknown]
  - Systemic lupus erythematosus [Unknown]
  - Injection site pain [Unknown]

NARRATIVE: CASE EVENT DATE: 201910
